FAERS Safety Report 23071265 (Version 3)
Quarter: 2023Q4

REPORT INFORMATION
  Report Type: Spontaneous
  Country: JP (occurrence: JP)
  Receive Date: 20231016
  Receipt Date: 20231102
  Transmission Date: 20240110
  Serious: Yes (Hospitalization, Other)
  Sender: FDA-Public Use
  Company Number: None

PATIENT

DRUGS (2)
  1. SERETIDE [Suspect]
     Active Substance: FLUTICASONE PROPIONATE\SALMETEROL XINAFOATE
     Indication: Asthma
     Dosage: UNK
  2. HERBALS [Suspect]
     Active Substance: HERBALS
     Dosage: UNK

REACTIONS (19)
  - Eosinophilic granulomatosis with polyangiitis [Unknown]
  - Hypoaesthesia [Unknown]
  - Eosinophil count increased [Recovered/Resolved]
  - Cutaneous vasculitis [Unknown]
  - Asthma [Recovered/Resolved]
  - Sinusitis [Unknown]
  - Joint stiffness [Unknown]
  - Nodule [Unknown]
  - Odynophagia [Unknown]
  - Sensation of foreign body [Unknown]
  - Muscle spasms [Unknown]
  - Ecchymosis [Unknown]
  - Joint swelling [Unknown]
  - Peripheral swelling [Unknown]
  - Arthralgia [Unknown]
  - Purpura [Unknown]
  - Eosinophilia [Unknown]
  - Exposure during pregnancy [Unknown]
  - Live birth [Unknown]
